FAERS Safety Report 8472134-6 (Version None)
Quarter: 2012Q2

REPORT INFORMATION
  Report Type: 
  Country: None (occurrence: None)
  Receive Date: 20120627
  Receipt Date: 20120621
  Transmission Date: 20120825
  Serious: Yes (Hospitalization)
  Sender: FDA-Public Use
  Company Number: IT-BRISTOL-MYERS SQUIBB COMPANY-15689060

PATIENT
  Age: 40 Year
  Sex: Male

DRUGS (3)
  1. PACLITAXEL [Suspect]
     Indication: THYMOMA
     Route: 042
     Dates: start: 20110624, end: 20110717
  2. CYCLOPHOSPHAMIDE [Suspect]
     Indication: THYMOMA
     Route: 042
     Dates: start: 20110624, end: 20110717
  3. EPIRUBICIN HYDROCHLORIDE [Suspect]
     Indication: THYMOMA
     Route: 042
     Dates: start: 20110624, end: 20110717

REACTIONS (4)
  - HYPERTRANSAMINASAEMIA [None]
  - ALOPECIA [None]
  - NEUTROPENIA [None]
  - MALAISE [None]
